FAERS Safety Report 13455121 (Version 5)
Quarter: 2019Q3

REPORT INFORMATION
  Report Type: Spontaneous
  Country: US (occurrence: US)
  Receive Date: 20170419
  Receipt Date: 20190906
  Transmission Date: 20191004
  Serious: Yes (Hospitalization, Other)
  Sender: FDA-Public Use
  Company Number: US-BRISTOL-MYERS SQUIBB COMPANY-BMS-2017-032616

PATIENT
  Age: 61 Year
  Sex: Male
  Weight: 90.7 kg

DRUGS (6)
  1. YERVOY [Suspect]
     Active Substance: IPILIMUMAB
     Indication: PRODUCT USED FOR UNKNOWN INDICATION
     Dosage: 5 MILIGRAM PER MILILITER EVERY THREE MONTHS
     Route: 042
     Dates: start: 2016, end: 20190422
  2. CLONAZEPAM. [Concomitant]
     Active Substance: CLONAZEPAM
     Indication: PRODUCT USED FOR UNKNOWN INDICATION
     Dosage: 1 MILLIGRAM
     Route: 048
  3. LAMOTRIGINE. [Concomitant]
     Active Substance: LAMOTRIGINE
     Indication: DEPRESSION
     Dosage: 25 MILLIGRAM
     Route: 048
     Dates: start: 20190103, end: 20190128
  4. YERVOY [Suspect]
     Active Substance: IPILIMUMAB
     Indication: MALIGNANT MELANOMA
     Dosage: 10 MG/KG, Q3WK(935MG)
     Route: 042
     Dates: start: 20170214
  5. YERVOY [Suspect]
     Active Substance: IPILIMUMAB
     Indication: PRODUCT USED FOR UNKNOWN INDICATION
     Dosage: 5MG/KG, Q3WK(465)
     Route: 042
     Dates: start: 20170307
  6. YERVOY [Suspect]
     Active Substance: IPILIMUMAB
     Indication: PRODUCT USED FOR UNKNOWN INDICATION
     Dosage: 900 MILLIGRAM
     Route: 042
     Dates: start: 20171003

REACTIONS (14)
  - Rash [Recovered/Resolved]
  - Prescribed overdose [Unknown]
  - Conjunctivitis [Recovered/Resolved]
  - Skin laceration [Unknown]
  - Photosensitivity reaction [Unknown]
  - Headache [Recovering/Resolving]
  - Pineal gland cyst [Unknown]
  - Vision blurred [Unknown]
  - Decreased appetite [Recovering/Resolving]
  - Diarrhoea [Recovered/Resolved]
  - Chills [Recovered/Resolved]
  - Diplopia [Unknown]
  - Fall [Unknown]
  - Pyrexia [Recovered/Resolved]

NARRATIVE: CASE EVENT DATE: 201901
